FAERS Safety Report 18123496 (Version 1)
Quarter: 2020Q3

REPORT INFORMATION
  Report Type: Spontaneous
  Country: US (occurrence: US)
  Receive Date: 20200807
  Receipt Date: 20200807
  Transmission Date: 20201103
  Serious: Yes (Hospitalization)
  Sender: FDA-Public Use
  Company Number: None

PATIENT
  Sex: Female

DRUGS (3)
  1. PRAZOSIN, FAMOTIDINE, TRAZODONE, METHOCARBAMOL [Concomitant]
  2. ORENCIA [Suspect]
     Active Substance: ABATACEPT
     Indication: RHEUMATOID ARTHRITIS
     Dosage: ?          OTHER FREQUENCY:ONCE EVERY WEEK;?
     Route: 058
     Dates: start: 20200519
  3. BLACK COHOSH, COMBIVENT, DULOXETINE, CITALOPRAM, PREDNISONE [Concomitant]

REACTIONS (4)
  - Cognitive disorder [None]
  - Dizziness [None]
  - Gait disturbance [None]
  - Hypotension [None]
